FAERS Safety Report 23401002 (Version 2)
Quarter: 2024Q1

REPORT INFORMATION
  Report Type: Spontaneous
  Country: US (occurrence: US)
  Receive Date: 20240115
  Receipt Date: 20240130
  Transmission Date: 20240410
  Serious: Yes (Other)
  Sender: FDA-Public Use
  Company Number: US-JNJFOC-20240116490

PATIENT

DRUGS (5)
  1. TYLENOL EXTRA STRENGTH [Suspect]
     Active Substance: ACETAMINOPHEN
     Indication: Product used for unknown indication
     Route: 064
  2. NURTEC ODT [Suspect]
     Active Substance: RIMEGEPANT SULFATE
     Indication: Migraine
     Dosage: QOD
     Route: 064
     Dates: start: 20210920
  3. NURTEC ODT [Suspect]
     Active Substance: RIMEGEPANT SULFATE
     Route: 064
     Dates: start: 20210920
  4. NURTEC ODT [Suspect]
     Active Substance: RIMEGEPANT SULFATE
     Dosage: QOD
     Route: 064
     Dates: start: 202108, end: 202202
  5. NURTEC ODT [Suspect]
     Active Substance: RIMEGEPANT SULFATE
     Dosage: PRN
     Route: 064
     Dates: start: 20220210

REACTIONS (4)
  - Foetal exposure during pregnancy [Unknown]
  - Fallot^s tetralogy [Unknown]
  - Renal dysplasia [Unknown]
  - Umbilical cord vascular disorder [Unknown]
